FAERS Safety Report 5417999-7 (Version None)
Quarter: 2007Q3

REPORT INFORMATION
  Report Type: 
  Country: None (occurrence: None)
  Receive Date: 20070817
  Receipt Date: 20070626
  Transmission Date: 20080115
  Serious: No
  Sender: FDA-Public Use
  Company Number: A0660241A

PATIENT
  Sex: Female

DRUGS (1)
  1. VERAMYST [Suspect]
     Dosage: 2SPR UNKNOWN
     Route: 045

REACTIONS (1)
  - RASH [None]
